FAERS Safety Report 8085077-7 (Version None)
Quarter: 2012Q1

REPORT INFORMATION
  Report Type: 
  Country: None (occurrence: None)
  Receive Date: 20120128
  Receipt Date: 20110317
  Transmission Date: 20120608
  Serious: No
  Sender: FDA-Public Use
  Company Number: US-ABBOTT-11P-163-0713098-00

PATIENT
  Sex: Male
  Weight: 96.248 kg

DRUGS (6)
  1. IMODIUM [Concomitant]
     Indication: CROHN'S DISEASE
  2. HUMIRA [Suspect]
     Indication: CROHN'S DISEASE
     Route: 058
  3. AMLODIPINE [Suspect]
     Indication: HYPERTENSION
     Dates: start: 20100501, end: 20101101
  4. ZYRTEC [Concomitant]
     Indication: HYPERSENSITIVITY
  5. METOPROLOL TARTRATE [Concomitant]
     Indication: HYPERTENSION
  6. HYDROCHLOROTHIAZIDE [Concomitant]
     Indication: HYPERTENSION

REACTIONS (4)
  - BLOOD PRESSURE INCREASED [None]
  - DIARRHOEA [None]
  - CROHN'S DISEASE [None]
  - OEDEMA PERIPHERAL [None]
